FAERS Safety Report 24562190 (Version 1)
Quarter: 2024Q4

REPORT INFORMATION
  Report Type: Report from Study
  Country: US (occurrence: US)
  Receive Date: 20241029
  Receipt Date: 20241029
  Transmission Date: 20250114
  Serious: Yes (Hospitalization)
  Sender: ABBVIE
  Company Number: US-ABBVIE-5981500

PATIENT
  Sex: Male

DRUGS (1)
  1. SKYRIZI [Suspect]
     Active Substance: RISANKIZUMAB-RZAA
     Indication: Product used for unknown indication
     Route: 042
     Dates: start: 20240823

REACTIONS (5)
  - Neck pain [Unknown]
  - Red blood cell sedimentation rate increased [Unknown]
  - Chest pain [Unknown]
  - Oropharyngeal pain [Unknown]
  - Facial pain [Unknown]

NARRATIVE: CASE EVENT DATE: 20240101
